FAERS Safety Report 5380954-X (Version None)
Quarter: 2007Q3

REPORT INFORMATION
  Report Type: 
  Country: None (occurrence: None)
  Receive Date: 20070706
  Receipt Date: 20070702
  Transmission Date: 20080115
  Serious: Yes (Hospitalization)
  Sender: FDA-Public Use
  Company Number: IT-SANOFI-SYNTHELABO-A06200700265

PATIENT
  Sex: Female

DRUGS (1)
  1. PLAQUENIL [Suspect]
     Indication: ERYTHROSIS
     Route: 048
     Dates: start: 20070507, end: 20070523

REACTIONS (2)
  - RASH MACULO-PAPULAR [None]
  - SOMNOLENCE [None]
